FAERS Safety Report 13904727 (Version 1)
Quarter: 2017Q3

REPORT INFORMATION
  Report Type: Spontaneous
  Country: US (occurrence: US)
  Receive Date: 20170824
  Receipt Date: 20170824
  Transmission Date: 20171127
  Serious: Yes (Life-Threatening, Hospitalization)
  Sender: FDA-Public Use
  Company Number: None

PATIENT
  Age: 67 Year
  Sex: Male
  Weight: 83.88 kg

DRUGS (1)
  1. LIRAGLUTIDE [Suspect]
     Active Substance: LIRAGLUTIDE
     Indication: TYPE 2 DIABETES MELLITUS
     Route: 058
     Dates: start: 20160323, end: 20170728

REACTIONS (4)
  - Pancreatic carcinoma [None]
  - Metastases to liver [None]
  - Glycosylated haemoglobin increased [None]
  - Metastases to biliary tract [None]

NARRATIVE: CASE EVENT DATE: 20170810
